FAERS Safety Report 4264802-7 (Version None)
Quarter: 2004Q1

REPORT INFORMATION
  Report Type: 
  Country: None (occurrence: None)
  Receive Date: 20040105
  Receipt Date: 20031223
  Transmission Date: 20041129
  Serious: Yes (Other)
  Sender: FDA-Public Use
  Company Number: 2003191968IE

PATIENT
  Age: 49 Year
  Sex: Male

DRUGS (6)
  1. DELTA-CORTEF [Suspect]
     Indication: T-CELL LYMPHOMA
     Dosage: 75 MG, QD, UNK
  2. METHOTREXATE [Concomitant]
  3. DOXORUBICIN HCL [Concomitant]
  4. CYCLOPHOSPHAMIDE [Concomitant]
  5. VINCRISTINE [Concomitant]
  6. BLEOMYCIN [Concomitant]

REACTIONS (4)
  - HYPERTRIGLYCERIDAEMIA [None]
  - INSULIN RESISTANT DIABETES [None]
  - LIPODYSTROPHY ACQUIRED [None]
  - PAROTID GLAND ENLARGEMENT [None]
